FAERS Safety Report 15217984 (Version 1)
Quarter: 2018Q3

REPORT INFORMATION
  Report Type: Spontaneous
  Country: US (occurrence: US)
  Receive Date: 20180730
  Receipt Date: 20180730
  Transmission Date: 20181010
  Serious: No
  Sender: FDA-Public Use
  Company Number: US-DENTSPLY PHARMACEUTICAL-2018SCDP000133

PATIENT

DRUGS (2)
  1. LIDOCAINE HCL [Suspect]
     Active Substance: LIDOCAINE HYDROCHLORIDE
     Indication: LOCAL ANAESTHESIA
     Dosage: UNK
  2. LIDOCAINE HCL [Suspect]
     Active Substance: LIDOCAINE HYDROCHLORIDE
     Dosage: 2 CC OF 1 %, UNK

REACTIONS (1)
  - Eyelid ptosis [Unknown]
